FAERS Safety Report 5415519-4 (Version None)
Quarter: 2007Q3

REPORT INFORMATION
  Report Type: 
  Country: None (occurrence: None)
  Receive Date: 20070815
  Receipt Date: 20070809
  Transmission Date: 20080115
  Serious: Yes (Other)
  Sender: FDA-Public Use
  Company Number: A0664852A

PATIENT
  Age: 54 Year
  Sex: Female

DRUGS (5)
  1. LAMICTAL [Suspect]
     Indication: BIPOLAR DISORDER
     Dosage: 200MG PER DAY
     Route: 048
     Dates: end: 20070718
  2. GEODON [Concomitant]
     Indication: BIPOLAR DISORDER
     Dosage: 80MG PER DAY
     Route: 048
     Dates: start: 20050509
  3. ADDERALL 10 [Concomitant]
     Indication: ATTENTION DEFICIT/HYPERACTIVITY DISORDER
     Dosage: 10MG TWICE PER DAY
     Route: 048
     Dates: start: 20060727
  4. KLONOPIN [Concomitant]
     Indication: BIPOLAR DISORDER
     Dosage: 2MG AT NIGHT
     Route: 048
  5. ADDERALL XR [Concomitant]
     Indication: ATTENTION DEFICIT/HYPERACTIVITY DISORDER
     Dosage: 30MG PER DAY
     Route: 048
     Dates: start: 20060815

REACTIONS (2)
  - CONTUSION [None]
  - THROMBOCYTOPENIA [None]
